FAERS Safety Report 16380898 (Version 1)
Quarter: 2019Q2

REPORT INFORMATION
  Report Type: Spontaneous
  Country: FR (occurrence: FR)
  Receive Date: 20190602
  Receipt Date: 20190602
  Transmission Date: 20190711
  Serious: Yes (Disabling, Other)
  Sender: FDA-Public Use
  Company Number: FR-TEVA-2019-FR-1056376

PATIENT
  Sex: Female

DRUGS (1)
  1. COPAXONE [Suspect]
     Active Substance: GLATIRAMER ACETATE
     Dates: start: 201902, end: 201905

REACTIONS (8)
  - Transaminases increased [Unknown]
  - Abdominal pain upper [Unknown]
  - Hot flush [Unknown]
  - Discomfort [Unknown]
  - Drug intolerance [Unknown]
  - Fatigue [Unknown]
  - Palpitations [Unknown]
  - Hepatocellular injury [Unknown]
